FAERS Safety Report 8236355 (Version 5)
Quarter: 2018Q4

REPORT INFORMATION
  Report Type: Report from Study
  Country: US (occurrence: US)
  Receive Date: 20111108
  Receipt Date: 20181114
  Transmission Date: 20190205
  Serious: Yes (Hospitalization, Other)
  Sender: FDA-Public Use
  Company Number: US-ACTELION-A-US2011-56445

PATIENT
  Age: 75 Year
  Sex: Female
  Weight: 77.55 kg

DRUGS (7)
  1. VITAMIN D [Concomitant]
     Active Substance: CHOLECALCIFEROL
     Dosage: 2000 MG, QD
     Dates: start: 2012
  2. TRACLEER [Suspect]
     Active Substance: BOSENTAN
     Indication: PULMONARY ARTERIAL HYPERTENSION
     Dosage: 125 MG, BID
     Route: 048
     Dates: start: 2002, end: 20181026
  3. SPIRONOLACTON [Concomitant]
     Active Substance: SPIRONOLACTONE
     Dosage: 25 MG, BID
     Dates: start: 2002
  4. POTASSIUM [Concomitant]
     Active Substance: POTASSIUM
     Dosage: 20 MG, BID
     Dates: start: 2002
  5. FUROSEMIDE. [Concomitant]
     Active Substance: FUROSEMIDE
     Dosage: 20 MG, QD
     Dates: start: 2002
  6. VITAMIN C [Concomitant]
     Active Substance: ASCORBIC ACID
     Dosage: 500 MG, QD
     Dates: start: 2013
  7. REVATIO [Concomitant]
     Active Substance: SILDENAFIL CITRATE
     Dosage: 20 MG, TID

REACTIONS (5)
  - Breast conserving surgery [Recovered/Resolved]
  - Invasive ductal breast carcinoma [Recovered/Resolved]
  - Blood bilirubin increased [Unknown]
  - Pulmonary arterial pressure increased [Unknown]
  - Mastectomy [Recovered/Resolved]

NARRATIVE: CASE EVENT DATE: 20110505
